FAERS Safety Report 7221215-3 (Version None)
Quarter: 2011Q1

REPORT INFORMATION
  Report Type: 
  Country: None (occurrence: None)
  Receive Date: 20110112
  Receipt Date: 20110107
  Transmission Date: 20110831
  Serious: Yes (Other)
  Sender: FDA-Public Use
  Company Number: US-BAXTER-2010BH022661

PATIENT
  Age: 63 Year
  Sex: Female

DRUGS (6)
  1. GAMMAGARD LIQUID [Suspect]
     Route: 042
     Dates: start: 20100823
  2. DIPHENHYDRAMINE [Concomitant]
     Indication: PREMEDICATION
     Route: 042
  3. SOLU-MEDROL [Concomitant]
     Indication: PREMEDICATION
     Route: 042
  4. GAMMAGARD LIQUID [Suspect]
     Indication: IMMUNODEFICIENCY COMMON VARIABLE
     Route: 042
     Dates: start: 20100101, end: 20100101
  5. GAMMAGARD LIQUID [Suspect]
     Indication: PRIMARY IMMUNODEFICIENCY SYNDROME
     Route: 042
     Dates: start: 20100101, end: 20100101
  6. GAMMAGARD LIQUID [Suspect]
     Route: 042
     Dates: start: 20100823

REACTIONS (10)
  - TREMOR [None]
  - PRURITUS [None]
  - ERYTHEMA [None]
  - HEADACHE [None]
  - FATIGUE [None]
  - NAUSEA [None]
  - BLISTER [None]
  - RASH [None]
  - SKIN EXFOLIATION [None]
  - FEELING HOT [None]
